FAERS Safety Report 7162950-5 (Version None)
Quarter: 2010Q4

REPORT INFORMATION
  Report Type: 
  Country: None (occurrence: None)
  Receive Date: 20101210
  Receipt Date: 20101210
  Transmission Date: 20110411
  Serious: Yes (Hospitalization)
  Sender: FDA-Public Use
  Company Number: None

PATIENT
  Sex: Male
  Weight: 90.7194 kg

DRUGS (1)
  1. METOPROLOL SUCCINATE [Suspect]
     Dosage: 25MG 1.5 TAB BID PO
     Route: 048
     Dates: start: 20101030, end: 20101114

REACTIONS (2)
  - PRODUCT SUBSTITUTION ISSUE [None]
  - VENTRICULAR EXTRASYSTOLES [None]
